FAERS Safety Report 5156215-0 (Version None)
Quarter: 2006Q4

REPORT INFORMATION
  Report Type: 
  Country: None (occurrence: None)
  Receive Date: 20061114
  Receipt Date: 20061010
  Transmission Date: 20070319
  Serious: Yes (Other)
  Sender: FDA-Public Use
  Company Number: DSA_81451_2003

PATIENT
  Age: 33 Year
  Sex: Female
  Weight: 60.782 kg

DRUGS (9)
  1. XYREM [Suspect]
     Indication: NARCOLEPSY
     Dosage: 4.5 G TWICE NIGHTLY PO
     Route: 048
     Dates: start: 20050725, end: 20050725
  2. XYREM [Suspect]
     Indication: NARCOLEPSY
     Dosage: 1.5 G TWICE NIGHTLY PO
     Route: 048
     Dates: start: 20050925, end: 20050926
  3. XYREM [Suspect]
     Indication: NARCOLEPSY
     Dosage: 2.25 G TWICE NIGHTLY PO
     Route: 048
     Dates: start: 20050927, end: 20051002
  4. BUSPAR [Suspect]
     Dosage: 40 MG QHS
     Dates: end: 20050923
  5. FLUOXETINE [Suspect]
     Dosage: DF QDAY
     Dates: end: 20050924
  6. ACYCLOVIR [Concomitant]
  7. ASACOL [Concomitant]
  8. DEXTROAMPHETAMINE [Concomitant]
  9. HYOSCYAMINE SULFATE [Concomitant]

REACTIONS (21)
  - ANXIETY [None]
  - APHASIA [None]
  - CONFUSIONAL STATE [None]
  - DIZZINESS [None]
  - DRUG INTERACTION [None]
  - EUPHORIC MOOD [None]
  - FEAR [None]
  - FEELING ABNORMAL [None]
  - GAIT DISTURBANCE [None]
  - GASTROINTESTINAL DISORDER [None]
  - HYPERHIDROSIS [None]
  - INCORRECT DOSE ADMINISTERED [None]
  - INSOMNIA [None]
  - NAUSEA [None]
  - NERVOUS SYSTEM DISORDER [None]
  - PANIC REACTION [None]
  - RETCHING [None]
  - SEDATION [None]
  - SOMNOLENCE [None]
  - VOMITING [None]
  - WEIGHT DECREASED [None]
